FAERS Safety Report 7936865-6 (Version None)
Quarter: 2011Q4

REPORT INFORMATION
  Report Type: 
  Country: None (occurrence: None)
  Receive Date: 20111123
  Receipt Date: 20111123
  Transmission Date: 20120403
  Serious: Yes (Other)
  Sender: FDA-Public Use
  Company Number: None

PATIENT
  Age: 6 Year
  Sex: Male
  Weight: 48.987 kg

DRUGS (1)
  1. PULMICORT FLEXHALER [Suspect]
     Indication: ASTHMA
     Dosage: 1 PUFF
     Route: 055
     Dates: start: 20111111, end: 20111119

REACTIONS (3)
  - EMOTIONAL POVERTY [None]
  - AGGRESSION [None]
  - DEPRESSION [None]
